FAERS Safety Report 9536017 (Version 1)
Quarter: 2013Q2

REPORT INFORMATION
  Report Type: Spontaneous
  Country: US (occurrence: None)
  Receive Date: 20130507
  Receipt Date: 20130507
  Transmission Date: 20140414
  Serious: Yes (Other)
  Sender: FDA-Public Use
  Company Number: PHEH2012US025079

PATIENT
  Age: 82 Year
  Sex: Female

DRUGS (1)
  1. AFINITOR (RAD) [Suspect]
     Indication: BREAST CANCER STAGE IV

REACTIONS (6)
  - Muscle spasms [None]
  - Toothache [None]
  - Gingival pain [None]
  - Stomatitis [None]
  - Dysgeusia [None]
  - Acne [None]
